FAERS Safety Report 7062766-4 (Version None)
Quarter: 2010Q4

REPORT INFORMATION
  Report Type: 
  Country: None (occurrence: None)
  Receive Date: 20101026
  Receipt Date: 20100129
  Transmission Date: 20110411
  Serious: Yes (Other)
  Sender: FDA-Public Use
  Company Number: US-PFIZER INC-2010012930

PATIENT
  Sex: Male

DRUGS (2)
  1. LIPITOR [Suspect]
     Dosage: 40 MG, UNK
     Dates: start: 20070101
  2. LIPITOR [Suspect]
     Dosage: 20 MG, UNK
     Dates: start: 19980101, end: 20070101

REACTIONS (1)
  - RHABDOMYOLYSIS [None]
